FAERS Safety Report 6129027-9 (Version None)
Quarter: 2009Q1

REPORT INFORMATION
  Report Type: 
  Country: None (occurrence: None)
  Receive Date: 20090324
  Receipt Date: 20090311
  Transmission Date: 20090719
  Serious: Yes (Other)
  Sender: FDA-Public Use
  Company Number: US-ELI_LILLY_AND_COMPANY-US200903002773

PATIENT
  Sex: Female

DRUGS (8)
  1. FORTEO [Suspect]
     Indication: OSTEOPOROSIS
     Dosage: 20 UG, DAILY (1/D)
  2. FORTEO [Suspect]
     Dosage: 20 UG, DAILY (1/D)
  3. FORTEO [Suspect]
     Dosage: 20 UG, DAILY (1/D)
  4. FORTEO [Suspect]
     Dosage: 20 UG, DAILY (1/D)
     Dates: end: 20090201
  5. CALCIUM [Concomitant]
  6. VITAMINS [Concomitant]
  7. ENBREL [Concomitant]
  8. METHOTREXATE [Concomitant]

REACTIONS (14)
  - AGGRESSION [None]
  - ALOPECIA [None]
  - BLOOD CALCIUM INCREASED [None]
  - BODY HEIGHT DECREASED [None]
  - FALL [None]
  - FEELING ABNORMAL [None]
  - HEADACHE [None]
  - HYPERSENSITIVITY [None]
  - INFECTION [None]
  - NASAL CONGESTION [None]
  - NASOPHARYNGITIS [None]
  - PELVIC FRACTURE [None]
  - PULMONARY CONGESTION [None]
  - SPINAL FRACTURE [None]
